FAERS Safety Report 11526941 (Version 1)
Quarter: 2015Q3

REPORT INFORMATION
  Report Type: Spontaneous
  Country: US (occurrence: US)
  Receive Date: 20150903
  Receipt Date: 20150903
  Transmission Date: 20151125
  Serious: Yes (Other)
  Sender: FDA-Public Use
  Company Number: US-ELI_LILLY_AND_COMPANY-US201307010503

PATIENT
  Sex: Female

DRUGS (2)
  1. DULOXETINE HYDROCHLORIDE. [Suspect]
     Active Substance: DULOXETINE HYDROCHLORIDE
     Dosage: 60 MG, UNKNOWN
     Route: 065
  2. PREVACID [Concomitant]
     Active Substance: LANSOPRAZOLE
     Dosage: 60 MG, UNKNOWN
     Route: 065

REACTIONS (10)
  - Insomnia [Unknown]
  - Balance disorder [Unknown]
  - Suicidal ideation [Unknown]
  - Hyperhidrosis [Unknown]
  - Tinnitus [Unknown]
  - Agitation [Unknown]
  - Drug withdrawal syndrome [Unknown]
  - Nausea [Unknown]
  - Dizziness [Unknown]
  - Paranoia [Unknown]
